FAERS Safety Report 11862392 (Version 1)
Quarter: 2015Q4

REPORT INFORMATION
  Report Type: Spontaneous
  Country: TR (occurrence: TR)
  Receive Date: 20151223
  Receipt Date: 20151223
  Transmission Date: 20160305
  Serious: Yes (Other)
  Sender: FDA-Public Use
  Company Number: TR-SUN PHARMACEUTICAL INDUSTRIES LTD-2015R1-108126

PATIENT
  Age: 82 Year
  Sex: Female

DRUGS (1)
  1. LITHIUM. [Suspect]
     Active Substance: LITHIUM
     Indication: PRODUCT USED FOR UNKNOWN INDICATION
     Route: 065

REACTIONS (5)
  - Hypercalcaemia [Unknown]
  - Hyperparathyroidism [Unknown]
  - Nephrogenic diabetes insipidus [Unknown]
  - Sinus bradycardia [Unknown]
  - Thyroid disorder [Unknown]
